FAERS Safety Report 16250625 (Version 1)
Quarter: 2019Q2

REPORT INFORMATION
  Report Type: Spontaneous
  Country: GB (occurrence: GB)
  Receive Date: 20190429
  Receipt Date: 20190429
  Transmission Date: 20190711
  Serious: Yes (Disabling)
  Sender: FDA-Public Use
  Company Number: GB-TORRENT-00002043

PATIENT
  Age: 31 Year
  Sex: Male
  Weight: 73 kg

DRUGS (1)
  1. QUETIAPINE. [Suspect]
     Active Substance: QUETIAPINE
     Indication: DEPRESSION
     Dosage: STARTED AT 300MG (EXTENDED RELEASE), SLOWLY TAPERING DOWN TO 25MG OVER 6 WEEKS THEN CEASE.
     Route: 048
     Dates: start: 20110606, end: 20120827

REACTIONS (8)
  - Diarrhoea [Unknown]
  - Pollakiuria [Unknown]
  - Rhinorrhoea [Unknown]
  - Withdrawal syndrome [Not Recovered/Not Resolved]
  - Insomnia [Not Recovered/Not Resolved]
  - Lacrimation increased [Unknown]
  - Pruritus [Unknown]
  - Discomfort [Unknown]

NARRATIVE: CASE EVENT DATE: 20120827
